FAERS Safety Report 5683110-0 (Version None)
Quarter: 2008Q1

REPORT INFORMATION
  Report Type: 
  Country: None (occurrence: None)
  Receive Date: 20080327
  Receipt Date: 20080317
  Transmission Date: 20080703
  Serious: Yes (Other)
  Sender: FDA-Public Use
  Company Number: DE-WYE-H03298308

PATIENT
  Sex: Female

DRUGS (3)
  1. PANTOZOL [Suspect]
     Indication: GASTRIC DISORDER
     Dosage: UNKNOWN
  2. CLARITHROMYCIN [Suspect]
     Indication: GASTRIC DISORDER
     Dosage: UNKNOWN
  3. AMOXICILLIN [Suspect]
     Indication: GASTRIC DISORDER
     Dosage: UNKNOWN

REACTIONS (6)
  - DRY EYE [None]
  - EYE DISORDER [None]
  - PHOTOPHOBIA [None]
  - PHOTOPSIA [None]
  - VISION BLURRED [None]
  - VISUAL DISTURBANCE [None]
